FAERS Safety Report 4753336-9 (Version None)
Quarter: 2005Q3

REPORT INFORMATION
  Report Type: 
  Country: None (occurrence: None)
  Receive Date: 20050826
  Receipt Date: 20050817
  Transmission Date: 20060218
  Serious: Yes (Other)
  Sender: FDA-Public Use
  Company Number: US-JNJFOC-20050804387

PATIENT
  Sex: Female

DRUGS (15)
  1. INFLIXIMAB [Suspect]
     Indication: RHEUMATOID ARTHRITIS
     Dosage: TOTAL OF SIX INFUSIONS
     Route: 042
  2. METHOTREXATE [Suspect]
     Indication: RHEUMATOID ARTHRITIS
     Route: 048
  3. FOLIC ACID [Concomitant]
  4. PREDNISONE TAB [Concomitant]
  5. RANITIDINE HCL [Concomitant]
  6. AMLODIPINE [Concomitant]
  7. METHYLDOPA [Concomitant]
  8. CAPTOPRIL [Concomitant]
  9. METRONIDAZOLE [Concomitant]
  10. IBUPROFEN [Concomitant]
  11. AMITRIPTYLINE HCL [Concomitant]
  12. PROPRANOLOL [Concomitant]
  13. HYDROCHLOROTHIAZIDE [Concomitant]
  14. SECNIDAZOLE [Concomitant]
  15. TERBINAFINE [Concomitant]

REACTIONS (2)
  - MALIGNANT ANORECTAL NEOPLASM [None]
  - SQUAMOUS CELL CARCINOMA [None]
